FAERS Safety Report 21014226 (Version 1)
Quarter: 2022Q2

REPORT INFORMATION
  Report Type: Report from Study
  Country: US (occurrence: US)
  Receive Date: 20220627
  Receipt Date: 20220627
  Transmission Date: 20220720
  Serious: Yes (Other)
  Sender: FDA-Public Use
  Company Number: US-ABBVIE-22K-163-4447463-00

PATIENT
  Age: 74 Year
  Sex: Male

DRUGS (1)
  1. IMBRUVICA [Suspect]
     Active Substance: IBRUTINIB
     Indication: Chronic lymphocytic leukaemia
     Route: 048

REACTIONS (6)
  - Neoplasm [Unknown]
  - Seizure [Unknown]
  - Memory impairment [Unknown]
  - Cerebrovascular accident [Unknown]
  - Blood urine present [Unknown]
  - Thrombosis [Unknown]

NARRATIVE: CASE EVENT DATE: 20220401
